FAERS Safety Report 25927429 (Version 1)
Quarter: 2025Q4

REPORT INFORMATION
  Report Type: Spontaneous
  Country: EU (occurrence: EU)
  Receive Date: 20251015
  Receipt Date: 20251015
  Transmission Date: 20260118
  Serious: Yes (Death, Life-Threatening, Other)
  Sender: AMGEN
  Company Number: EU-AMGEN-FRASP2025200454

PATIENT

DRUGS (3)
  1. DARBEPOETIN ALFA [Suspect]
     Active Substance: DARBEPOETIN ALFA
     Indication: Myelodysplastic syndrome
     Dosage: 300 MICROGRAM, QWK
     Route: 065
  2. LUSPATERCEPT [Concomitant]
     Active Substance: LUSPATERCEPT
     Indication: Myelodysplastic syndrome
     Dosage: 1.75 MILLIGRAM/KILOGRAM, Q3WK
     Route: 065
  3. ERYTHROPOIETIN [Concomitant]
     Active Substance: ERYTHROPOIETIN
     Indication: Myelodysplastic syndrome
     Dosage: AT LEAST 60000 UNITS
     Route: 065

REACTIONS (35)
  - Myelodysplastic syndrome [Fatal]
  - Cardiogenic shock [Unknown]
  - Acute kidney injury [Unknown]
  - Acute myeloid leukaemia [Unknown]
  - Lymphoma [Unknown]
  - Kidney infection [Unknown]
  - Myocardial infarction [Unknown]
  - Hepatic cytolysis [Unknown]
  - Atrial fibrillation [Unknown]
  - Pneumonia [Unknown]
  - Aplasia pure red cell [Unknown]
  - Hypothyroidism [Unknown]
  - Loss of therapeutic response [Unknown]
  - Treatment failure [Unknown]
  - Dizziness [Unknown]
  - Hypertension [Unknown]
  - Hypotension [Unknown]
  - Headache [Unknown]
  - Fatigue [Unknown]
  - Arthralgia [Unknown]
  - Diarrhoea [Unknown]
  - Nausea [Unknown]
  - Asthenia [Unknown]
  - Bone pain [Unknown]
  - Disturbance in attention [Unknown]
  - Auditory nerve disorder [Unknown]
  - Constipation [Unknown]
  - Paraesthesia oral [Unknown]
  - Pruritus [Unknown]
  - Injection site erythema [Unknown]
  - Bronchitis [Unknown]
  - Dyspnoea [Unknown]
  - Cystitis [Unknown]
  - Folliculitis [Unknown]
  - Cognitive disorder [Unknown]
